FAERS Safety Report 12853257 (Version 1)
Quarter: 2016Q4

REPORT INFORMATION
  Report Type: Spontaneous
  Country: GB (occurrence: GB)
  Receive Date: 20161017
  Receipt Date: 20161017
  Transmission Date: 20170207
  Serious: Yes (Life-Threatening, Other)
  Sender: FDA-Public Use
  Company Number: GB-PFIZER INC-2013143661

PATIENT
  Age: 13 Year
  Sex: Female
  Weight: 39 kg

DRUGS (5)
  1. LEVOMEPROMAZINE [Concomitant]
     Active Substance: LEVOMEPROMAZINE
     Dosage: 4.2 MG, 2X/DAY
     Route: 042
     Dates: start: 20130418, end: 20130418
  2. LEVOMEPROMAZINE [Concomitant]
     Active Substance: LEVOMEPROMAZINE
     Indication: OSTEOSARCOMA
     Dosage: 4.2 MG, 2X/DAY
     Route: 048
     Dates: start: 20130418, end: 20130418
  3. METHOTREXATE SODIUM. [Suspect]
     Active Substance: METHOTREXATE SODIUM
     Indication: OSTEOSARCOMA
     Dosage: 12 G/M^2
     Route: 042
     Dates: start: 20130418, end: 20130418
  4. METHOTREXATE SODIUM. [Suspect]
     Active Substance: METHOTREXATE SODIUM
     Dosage: 12 G/M^2
     Route: 042
     Dates: start: 20130418, end: 20130418
  5. CLARITHROMYCIN. [Concomitant]
     Active Substance: CLARITHROMYCIN
     Indication: LOWER RESPIRATORY TRACT INFECTION
     Dosage: UNK
     Route: 048

REACTIONS (2)
  - Blood creatine increased [Not Recovered/Not Resolved]
  - General physical health deterioration [Not Recovered/Not Resolved]

NARRATIVE: CASE EVENT DATE: 20130418
